FAERS Safety Report 5012259-0 (Version None)
Quarter: 2006Q2

REPORT INFORMATION
  Report Type: 
  Country: None (occurrence: None)
  Receive Date: 20060525
  Receipt Date: 20060525
  Transmission Date: 20061013
  Serious: Yes (Hospitalization)
  Sender: FDA-Public Use
  Company Number: None

PATIENT
  Age: 26 Year
  Sex: Male
  Weight: 99.7913 kg

DRUGS (1)
  1. FEXOFENADINE [Suspect]
     Indication: MULTIPLE ALLERGIES
     Dosage: 180MG ONCE DAILY PO [2 DOSES]
     Route: 048
     Dates: start: 20060404, end: 20060405

REACTIONS (2)
  - BACK PAIN [None]
  - IMMOBILE [None]
